FAERS Safety Report 9057895 (Version 1)
Quarter: 2013Q1

REPORT INFORMATION
  Report Type: Report from Study
  Country: US (occurrence: US)
  Receive Date: 20130210
  Receipt Date: 20130210
  Transmission Date: 20140127
  Serious: Yes (Other)
  Sender: FDA-Public Use
  Company Number: US-BAYER-2013-015356

PATIENT
  Age: 39 Year
  Sex: Male

DRUGS (1)
  1. BETASERON [Suspect]
     Indication: MULTIPLE SCLEROSIS
     Dosage: 8 MIU, QOD
     Route: 058
     Dates: start: 20120801

REACTIONS (3)
  - Multiple sclerosis [Not Recovered/Not Resolved]
  - Extraskeletal ossification [Not Recovered/Not Resolved]
  - Injection site rash [Not Recovered/Not Resolved]
